FAERS Safety Report 5700324-1 (Version None)
Quarter: 2008Q2

REPORT INFORMATION
  Report Type: 
  Country: None (occurrence: None)
  Receive Date: 20080408
  Receipt Date: 20080408
  Transmission Date: 20081010
  Serious: Yes (Other)
  Sender: FDA-Public Use
  Company Number: None

PATIENT
  Sex: Male

DRUGS (1)
  1. AMOXIL [Suspect]
     Indication: PNEUMONIA
     Dosage: 9ML BID PO
     Route: 048
     Dates: start: 20080323, end: 20080402

REACTIONS (1)
  - HYPERSENSITIVITY [None]
